FAERS Safety Report 17865391 (Version 1)
Quarter: 2020Q2

REPORT INFORMATION
  Report Type: Spontaneous
  Country: US (occurrence: US)
  Receive Date: 20200605
  Receipt Date: 20200605
  Transmission Date: 20200714
  Serious: Yes (Other)
  Sender: FDA-Public Use
  Company Number: US-APOTEX-2020AP011466

PATIENT
  Age: 31 Year
  Sex: Female

DRUGS (1)
  1. NORETHINDRONATE/ETHINYL ESTRADIOL [Suspect]
     Active Substance: ETHINYL ESTRADIOL\NORETHINDRONE
     Indication: ORAL CONTRACEPTION
     Dosage: 1-20 MG-MICROGRAM, QD
     Route: 065

REACTIONS (2)
  - Biopsy liver abnormal [Unknown]
  - Venoocclusive liver disease [Unknown]
